FAERS Safety Report 7912909-2 (Version None)
Quarter: 2011Q4

REPORT INFORMATION
  Report Type: 
  Country: None (occurrence: None)
  Receive Date: 20111114
  Receipt Date: 20111107
  Transmission Date: 20120403
  Serious: Yes (Hospitalization, Other)
  Sender: FDA-Public Use
  Company Number: US-SANOFI-AVENTIS-2011SA070783

PATIENT
  Age: 56 Year
  Sex: Female

DRUGS (2)
  1. LANTUS [Suspect]
     Dosage: BETWEEN 50-80 UNITS ADJUSTED DEPEDED ON HER BS
     Route: 058
     Dates: start: 20080101
  2. LANTUS [Suspect]
     Indication: TYPE 2 DIABETES MELLITUS
     Dosage: DOSE:65 UNIT(S)
     Route: 058

REACTIONS (13)
  - PRODUCT QUALITY ISSUE [None]
  - BLINDNESS [None]
  - MEDICATION ERROR [None]
  - TOOTH DISORDER [None]
  - NODULE [None]
  - PRURITUS [None]
  - BLOOD GLUCOSE DECREASED [None]
  - FOOT AMPUTATION [None]
  - RENAL DISORDER [None]
  - URINE OUTPUT DECREASED [None]
  - LOCALISED INFECTION [None]
  - TOE AMPUTATION [None]
  - HYPERGLYCAEMIA [None]
